FAERS Safety Report 5296212-8 (Version None)
Quarter: 2007Q2

REPORT INFORMATION
  Report Type: 
  Country: None (occurrence: None)
  Receive Date: 20070413
  Receipt Date: 20070410
  Transmission Date: 20071010
  Serious: Yes (Hospitalization)
  Sender: FDA-Public Use
  Company Number: JP-JPN-A200701276

PATIENT
  Age: 88 Year
  Sex: Female
  Weight: 42 kg

DRUGS (9)
  1. MODACIN [Suspect]
     Indication: SEPSIS
     Dosage: 1G PER DAY
     Route: 042
     Dates: start: 20070319, end: 20070322
  2. PENTCILLIN [Suspect]
     Indication: INFECTION
     Dosage: 1G TWICE PER DAY
     Route: 042
     Dates: start: 20070315, end: 20070318
  3. FERO-GRADUMET [Suspect]
     Dosage: 105MG TWICE PER DAY
     Route: 048
     Dates: start: 20070322
  4. LAXOBERON [Concomitant]
     Route: 048
     Dates: start: 20070322, end: 20070322
  5. MONILAC [Concomitant]
     Route: 048
     Dates: start: 20070322, end: 20070322
  6. GASCON [Concomitant]
     Route: 048
     Dates: start: 20070322, end: 20070322
  7. MYSLEE [Concomitant]
     Indication: INSOMNIA
     Dosage: 10MG PER DAY
     Route: 048
     Dates: start: 20070319
  8. UNKNOWN DRUG [Concomitant]
     Route: 048
     Dates: start: 20070322, end: 20070322
  9. MEROPENEM [Concomitant]

REACTIONS (3)
  - BLOOD ALKALINE PHOSPHATASE INCREASED [None]
  - RASH [None]
  - WHEEZING [None]
